FAERS Safety Report 14080376 (Version 1)
Quarter: 2017Q4

REPORT INFORMATION
  Report Type: Spontaneous
  Country: US (occurrence: US)
  Receive Date: 20171012
  Receipt Date: 20171012
  Transmission Date: 20180321
  Serious: No
  Sender: FDA-Public Use
  Company Number: US-MYLANLABS-2017M1035734

PATIENT
  Sex: Male
  Weight: 95 kg

DRUGS (3)
  1. PREDNISONE. [Suspect]
     Active Substance: PREDNISONE
     Indication: VASCULITIS
     Dosage: 10 MG, QD
     Route: 048
  2. PANTOPRAZOLE [Concomitant]
     Active Substance: PANTOPRAZOLE
     Indication: GASTROOESOPHAGEAL REFLUX DISEASE
     Dosage: UNK
  3. MYCOPHENOLATE [Suspect]
     Active Substance: MYCOPHENOLIC ACID
     Indication: VASCULITIS
     Dosage: 500 MG, BID
     Route: 048
     Dates: start: 201401, end: 201702

REACTIONS (2)
  - Abnormal dreams [Recovered/Resolved]
  - Nightmare [Recovered/Resolved]
